FAERS Safety Report 11523705 (Version 1)
Quarter: 2015Q3

REPORT INFORMATION
  Report Type: Spontaneous
  Country: US (occurrence: US)
  Receive Date: 20150903
  Receipt Date: 20150903
  Transmission Date: 20151125
  Serious: No
  Sender: FDA-Public Use
  Company Number: US-ELI_LILLY_AND_COMPANY-US201303001249

PATIENT
  Sex: Male

DRUGS (1)
  1. CYMBALTA [Suspect]
     Active Substance: DULOXETINE HYDROCHLORIDE
     Indication: BACK PAIN
     Dosage: 60 MG, QD
     Dates: start: 201205, end: 20130301

REACTIONS (10)
  - Hostility [Unknown]
  - Neuropathy peripheral [Unknown]
  - Insomnia [Unknown]
  - Feeling hot [Unknown]
  - Mood swings [Unknown]
  - Hyperhidrosis [Unknown]
  - Adverse event [Unknown]
  - Anger [Unknown]
  - Mental impairment [Unknown]
  - Irritability [Unknown]
